FAERS Safety Report 5078645-8 (Version None)
Quarter: 2006Q3

REPORT INFORMATION
  Report Type: 
  Country: None (occurrence: None)
  Receive Date: 20060810
  Receipt Date: 20060810
  Transmission Date: 20061208
  Serious: No
  Sender: FDA-Public Use
  Company Number: None

PATIENT

DRUGS (1)
  1. FENTANYL CITRATE [Suspect]
     Indication: ANAESTHESIA
     Dosage: 100  MCG/  2ML     IV
     Route: 042
     Dates: start: 20060808, end: 20060808

REACTIONS (1)
  - PHARMACEUTICAL PRODUCT COMPLAINT [None]
